FAERS Safety Report 9248487 (Version 1)
Quarter: 2013Q2

REPORT INFORMATION
  Report Type: Spontaneous
  Country: NZ (occurrence: NZ)
  Receive Date: 20130423
  Receipt Date: 20130423
  Transmission Date: 20140414
  Serious: Yes (Hospitalization)
  Sender: FDA-Public Use
  Company Number: NZ-ELI_LILLY_AND_COMPANY-NZ201304002829

PATIENT
  Age: 55 Year
  Sex: Male

DRUGS (6)
  1. ZYPREXA RELPREVV [Suspect]
     Indication: SCHIZOPHRENIA
     Dosage: 405 MG, UNKNOWN
  2. ZYPREXA RELPREVV [Suspect]
     Dosage: 300 MG, 2/M
  3. OLANZAPINE [Suspect]
     Indication: SCHIZOPHRENIA
     Dosage: 40 MG, QD
     Route: 048
  4. OLANZAPINE [Suspect]
     Dosage: 10 MG, QD
     Route: 048
  5. OLANZAPINE [Suspect]
     Dosage: 20 MG, UNKNOWN
  6. OLANZAPINE [Suspect]
     Dosage: 30 MG, UNKNOWN

REACTIONS (3)
  - Psychotic behaviour [Recovered/Resolved]
  - Drug ineffective [Unknown]
  - Prescribed overdose [Unknown]
